FAERS Safety Report 10853350 (Version 2)
Quarter: 2015Q2

REPORT INFORMATION
  Report Type: Spontaneous
  Country: CZ (occurrence: CZ)
  Receive Date: 20150223
  Receipt Date: 20150422
  Transmission Date: 20150821
  Serious: Yes (Hospitalization)
  Sender: FDA-Public Use
  Company Number: CZ-ACCORD-028684

PATIENT
  Age: 53 Year
  Sex: Male
  Weight: 94 kg

DRUGS (8)
  1. KYTRIL [Concomitant]
     Active Substance: GRANISETRON HYDROCHLORIDE
     Dosage: KYTRIL 3MG + SALINE SOLUTION 100ML
     Dates: start: 20140118, end: 20150121
  2. DOCETAXEL. [Concomitant]
     Active Substance: DOCETAXEL
     Dates: start: 20141218, end: 20141221
  3. DEXONA [Concomitant]
     Active Substance: DEXAMETHASONE
     Dosage: DEXONA 16 MG + SALINE SOLITION 100MLD1
     Dates: start: 20141218, end: 20141221
  4. SODIUM CHLORIDE. [Concomitant]
     Active Substance: SODIUM CHLORIDE
     Dates: start: 20141218, end: 20141221
  5. ACCORD^S FLUOROURACIL [Suspect]
     Active Substance: FLUOROURACIL
     Indication: PRODUCT USED FOR UNKNOWN INDICATION
     Dosage: 50 MG/ML
     Dates: start: 20141218, end: 20141221
  6. MANNITOL. [Concomitant]
     Active Substance: MANNITOL
     Dates: start: 20141218, end: 20141221
  7. CISPLATIN. [Concomitant]
     Active Substance: CISPLATIN
     Dosage: CISPLATIN 120 MG + RINGER^S SOLUTION 1000 ML D1D1
     Dates: start: 20141218, end: 20141221
  8. RANITIDINE [Concomitant]
     Active Substance: RANITIDINE\RANITIDINE HYDROCHLORIDE
     Dosage: RANITAL 50 MG + 20ML SALINE SOLUTIOND1
     Dates: start: 20141218, end: 20141221

REACTIONS (3)
  - Haematotoxicity [Unknown]
  - Neutropenia [Unknown]
  - Mucosal toxicity [Unknown]
